FAERS Safety Report 6943540-3 (Version None)
Quarter: 2010Q3

REPORT INFORMATION
  Report Type: 
  Country: None (occurrence: None)
  Receive Date: 20100826
  Receipt Date: 20100818
  Transmission Date: 20110219
  Serious: Yes (Hospitalization)
  Sender: FDA-Public Use
  Company Number: JP-ABBOTT-10P-087-0665649-00

PATIENT
  Sex: Female

DRUGS (5)
  1. LEUPRORELIN DEPOT [Suspect]
     Indication: MENOPAUSE
     Route: 058
     Dates: start: 20080328
  2. LEUPRORELIN DEPOT [Suspect]
  3. NOLVADEX [Concomitant]
     Indication: BREAST CANCER
     Route: 048
     Dates: start: 20080328
  4. NOLVADEX [Concomitant]
  5. ALLELOCK [Concomitant]
     Indication: PRODUCT USED FOR UNKNOWN INDICATION
     Route: 048
     Dates: start: 20090214, end: 20090410

REACTIONS (12)
  - BLOOD TRIGLYCERIDES INCREASED [None]
  - COUGH [None]
  - HEAT ILLNESS [None]
  - HEPATIC STEATOSIS [None]
  - HOT FLUSH [None]
  - HYPERHIDROSIS [None]
  - INJECTION SITE PAIN [None]
  - METRORRHAGIA [None]
  - NASOPHARYNGITIS [None]
  - PYREXIA [None]
  - UTERINE POLYP [None]
  - WEIGHT INCREASED [None]
